FAERS Safety Report 11610256 (Version 1)
Quarter: 2015Q4

REPORT INFORMATION
  Report Type: Report from Study
  Country: US (occurrence: US)
  Receive Date: 20151008
  Receipt Date: 20151008
  Transmission Date: 20160304
  Serious: Yes (Death, Life-Threatening, Hospitalization, Other)
  Sender: FDA-Public Use
  Company Number: US-ROCHE-1641546

PATIENT
  Age: 46 Year
  Sex: Male

DRUGS (31)
  1. IMURAN [Suspect]
     Active Substance: AZATHIOPRINE
     Route: 065
  2. IBUPROFEN. [Concomitant]
     Active Substance: IBUPROFEN
  3. TAZOBACTAM [Concomitant]
     Active Substance: TAZOBACTAM
  4. XOLAIR [Suspect]
     Active Substance: OMALIZUMAB
     Route: 058
  5. TOBI [Suspect]
     Active Substance: TOBRAMYCIN
     Indication: BRONCHIECTASIS
     Route: 065
  6. AZITHROMYCIN [Concomitant]
     Active Substance: AZITHROMYCIN ANHYDROUS
  7. COLACE [Concomitant]
     Active Substance: DOCUSATE SODIUM
  8. LEVOTHYROXINE. [Concomitant]
     Active Substance: LEVOTHYROXINE
  9. AVASTIN [Concomitant]
     Active Substance: BEVACIZUMAB
     Route: 065
  10. ZOFRAN [Concomitant]
     Active Substance: ONDANSETRON HYDROCHLORIDE
  11. FLONASE (UNITED STATES) [Concomitant]
  12. LEVOTHYROXINE SODIUM. [Concomitant]
     Active Substance: LEVOTHYROXINE SODIUM
     Route: 065
  13. IMURAN [Suspect]
     Active Substance: AZATHIOPRINE
     Route: 065
  14. LACTOBACILLUS ACIDOPHILUS [Concomitant]
     Active Substance: LACTOBACILLUS ACIDOPHILUS
  15. SODIUM BICARBONATE. [Concomitant]
     Active Substance: SODIUM BICARBONATE
  16. IMURAN [Suspect]
     Active Substance: AZATHIOPRINE
     Indication: PRODUCT USED FOR UNKNOWN INDICATION
     Route: 048
  17. ACETAMINOPHEN. [Concomitant]
     Active Substance: ACETAMINOPHEN
  18. MORPHINE [Concomitant]
     Active Substance: MORPHINE
  19. MILK OF MAGNESIA [Concomitant]
     Active Substance: MAGNESIUM HYDROXIDE
  20. VICODIN HP [Concomitant]
     Active Substance: ACETAMINOPHEN\HYDROCODONE BITARTRATE
  21. ALBUTEROL SULFATE. [Concomitant]
     Active Substance: ALBUTEROL SULFATE
  22. XOLAIR [Suspect]
     Active Substance: OMALIZUMAB
     Route: 058
     Dates: start: 20140310
  23. ADVAIR HFA [Concomitant]
     Active Substance: FLUTICASONE PROPIONATE\SALMETEROL XINAFOATE
     Dosage: 500/50 MCG
     Route: 065
  24. DEXAMETHASONE. [Concomitant]
     Active Substance: DEXAMETHASONE
     Route: 065
  25. LEVAQUIN [Concomitant]
     Active Substance: LEVOFLOXACIN
  26. MELATONIN [Concomitant]
     Active Substance: MELATONIN
  27. AZACTAM [Concomitant]
     Active Substance: AZTREONAM
  28. XOLAIR [Suspect]
     Active Substance: OMALIZUMAB
     Indication: ASTHMA
     Route: 058
     Dates: start: 20140226
  29. FENTANYL. [Suspect]
     Active Substance: FENTANYL
     Indication: PAIN
     Route: 065
  30. CIPRO [Concomitant]
     Active Substance: CIPROFLOXACIN HYDROCHLORIDE
     Indication: OTITIS EXTERNA
     Route: 065
  31. TRAMADOL HCL [Concomitant]
     Active Substance: TRAMADOL HYDROCHLORIDE
     Route: 065

REACTIONS (62)
  - Lethargy [Recovering/Resolving]
  - Renal failure [Unknown]
  - Pyrexia [Unknown]
  - Bronchitis [Unknown]
  - Pseudomonas bronchitis [Not Recovered/Not Resolved]
  - Rhinitis [Unknown]
  - Ear infection [Unknown]
  - Rhinitis allergic [Unknown]
  - Decreased appetite [Unknown]
  - General physical health deterioration [Unknown]
  - Skin ulcer [Unknown]
  - Lymphadenopathy [Recovering/Resolving]
  - Throat irritation [Unknown]
  - Poor quality sleep [Unknown]
  - Night sweats [Unknown]
  - Back pain [Unknown]
  - Pallor [Unknown]
  - Respiratory failure [Unknown]
  - Hyperlipidaemia [Unknown]
  - Hyperhidrosis [Unknown]
  - Attention deficit/hyperactivity disorder [Unknown]
  - Death [Fatal]
  - Pain [Recovering/Resolving]
  - Hypersensitivity vasculitis [Unknown]
  - Chest pain [Unknown]
  - Condition aggravated [Unknown]
  - Depression [Unknown]
  - Ligament sprain [Unknown]
  - Pneumonia [Unknown]
  - Failure to thrive [Recovering/Resolving]
  - Hypokalaemia [Unknown]
  - Malaise [Unknown]
  - Blood immunoglobulin E increased [Unknown]
  - Asthma [Not Recovered/Not Resolved]
  - Hyperthyroidism [Unknown]
  - Hypotension [Unknown]
  - Alopecia [Unknown]
  - Seasonal allergy [Unknown]
  - Conjunctivitis [Unknown]
  - Tachycardia [Unknown]
  - Respiratory distress [Unknown]
  - Lung infection [Unknown]
  - Pneumonia pseudomonal [Unknown]
  - Hypoxia [Recovering/Resolving]
  - Axonal neuropathy [Unknown]
  - Lung disorder [Unknown]
  - Product use issue [Unknown]
  - Apparent death [Unknown]
  - Pleuritic pain [Unknown]
  - Neuropathy peripheral [Unknown]
  - Acidosis [Unknown]
  - Vasculitis [Unknown]
  - Hypothyroidism [Unknown]
  - Otitis externa [Recovered/Resolved]
  - Gastrooesophageal reflux disease [Unknown]
  - Asthenia [Unknown]
  - Paralysis [Unknown]
  - Depressed level of consciousness [Unknown]
  - Fatigue [Unknown]
  - Bronchiectasis [Unknown]
  - Fall [Unknown]
  - Arthralgia [Unknown]

NARRATIVE: CASE EVENT DATE: 20140524
